FAERS Safety Report 25325007 (Version 1)
Quarter: 2025Q2

REPORT INFORMATION
  Report Type: Spontaneous
  Country: US (occurrence: None)
  Receive Date: 20250516
  Receipt Date: 20250516
  Transmission Date: 20250717
  Serious: Yes (unspecified)
  Sender: FDA-CTU
  Company Number: None

PATIENT
  Age: 68 Year
  Sex: Male
  Weight: 121.5 kg

DRUGS (2)
  1. QUETIAPINE FUMARATE [Suspect]
     Active Substance: QUETIAPINE FUMARATE
     Indication: Insomnia
     Dosage: 200 MG DAILY ORAL
     Route: 048
     Dates: start: 20250409, end: 20250421
  2. Quetiapine Fumarate 200 Mg Tab [Concomitant]
     Dates: start: 20250409, end: 20250421

REACTIONS (4)
  - Euphoric mood [None]
  - Blood pressure increased [None]
  - Heart rate increased [None]
  - Feeling abnormal [None]

NARRATIVE: CASE EVENT DATE: 20250421
